FAERS Safety Report 23736532 (Version 2)
Quarter: 2024Q2

REPORT INFORMATION
  Report Type: Spontaneous
  Country: JP (occurrence: None)
  Receive Date: 20240412
  Receipt Date: 20240529
  Transmission Date: 20240716
  Serious: Yes (Other)
  Sender: FDA-Public Use
  Company Number: 2024A084282

PATIENT
  Age: 55 Year
  Sex: Female

DRUGS (4)
  1. LYNPARZA [Suspect]
     Active Substance: OLAPARIB
     Indication: Ovarian cancer
     Dosage: 600.0MG UNKNOWN
     Route: 048
     Dates: start: 20190605, end: 20220421
  2. PARAPLATIN [Suspect]
     Active Substance: CARBOPLATIN
     Dates: start: 202204, end: 202208
  3. DOXORUBICIN HYDROCHLORIDE [Suspect]
     Active Substance: DOXORUBICIN HYDROCHLORIDE
     Dates: start: 202204, end: 202208
  4. DEXAMETHASONE [Suspect]
     Active Substance: DEXAMETHASONE
     Dates: start: 202204, end: 202208

REACTIONS (3)
  - Ovarian cancer recurrent [Recovering/Resolving]
  - Myelodysplastic syndrome [Recovering/Resolving]
  - Appendicitis [Unknown]

NARRATIVE: CASE EVENT DATE: 20220421
